FAERS Safety Report 9402499 (Version 1)
Quarter: 2013Q3

REPORT INFORMATION
  Report Type: Spontaneous
  Country: US (occurrence: None)
  Receive Date: 20130712
  Receipt Date: 20130712
  Transmission Date: 20140515
  Serious: Yes (Other)
  Sender: FDA-Public Use
  Company Number: None

PATIENT
  Age: 35 Year
  Sex: Female

DRUGS (1)
  1. SENSORCAINE-MPF WITH EPINEPHRINE [Suspect]
     Dates: start: 20130628

REACTIONS (1)
  - Product quality issue [None]
